FAERS Safety Report 11184200 (Version 1)
Quarter: 2015Q2

REPORT INFORMATION
  Report Type: Spontaneous
  Country: US (occurrence: US)
  Receive Date: 20150612
  Receipt Date: 20150612
  Transmission Date: 20150821
  Serious: No
  Sender: FDA-Public Use
  Company Number: US-PFIZER INC-2015193090

PATIENT
  Age: 55 Year
  Sex: Female

DRUGS (1)
  1. IBRANCE [Suspect]
     Active Substance: PALBOCICLIB
     Indication: BREAST CANCER
     Dosage: 125 MG, CYCLIC (ONE CAPSULE DAILY, FOR 21 DAYS EVERY 28 DAYS)
     Route: 048
     Dates: start: 20150417

REACTIONS (4)
  - Decreased interest [Unknown]
  - Neuropathy peripheral [Unknown]
  - Fatigue [Unknown]
  - Decreased appetite [Unknown]
